FAERS Safety Report 4538694-2 (Version None)
Quarter: 2004Q4

REPORT INFORMATION
  Report Type: 
  Country: None (occurrence: None)
  Receive Date: 20041227
  Receipt Date: 20041214
  Transmission Date: 20050328
  Serious: Yes (Other)
  Sender: FDA-Public Use
  Company Number: HQWYE042917DEC04

PATIENT
  Sex: Male
  Weight: 104.4 kg

DRUGS (5)
  1. ENBREL [Suspect]
     Indication: ANKYLOSING SPONDYLITIS
     Route: 058
     Dates: start: 20040601, end: 20040701
  2. BEXTRA [Concomitant]
     Indication: ANKYLOSING SPONDYLITIS
     Route: 048
  3. PROTONIX [Concomitant]
     Dosage: 40 MG AT BEDTIME
  4. INDERAL [Concomitant]
  5. MYSOLINE [Concomitant]

REACTIONS (1)
  - ACUTE PRERENAL FAILURE [None]
